FAERS Safety Report 8876195 (Version 1)
Quarter: 2012Q4

REPORT INFORMATION
  Report Type: 
  Country: CN (occurrence: CN)
  Receive Date: 20121023
  Receipt Date: 20121023
  Transmission Date: 20130627
  Serious: Yes (Other)
  Sender: FDA-Public Use
  Company Number: CN-WATSON-2012-17826

PATIENT
  Age: 2 Year
  Sex: Female

DRUGS (1)
  1. LEVETIRACETAM (UNKNOWN) [Suspect]
     Indication: CONVULSION
     Dosage: 20-30mg/kg/day
     Route: 065

REACTIONS (1)
  - Stevens-Johnson syndrome [Recovered/Resolved]
